FAERS Safety Report 8539968-0 (Version None)
Quarter: 2012Q3

REPORT INFORMATION
  Report Type: 
  Country: None (occurrence: None)
  Receive Date: 20120726
  Receipt Date: 20120720
  Transmission Date: 20120928
  Serious: Yes (Other)
  Sender: FDA-Public Use
  Company Number: PHHY2012IT062696

PATIENT
  Age: 22 Year
  Sex: Male

DRUGS (1)
  1. LEVETIRACETAM [Suspect]
     Indication: JUVENILE MYOCLONIC EPILEPSY
     Dosage: 2000 MG, DAILY

REACTIONS (4)
  - LOSS OF LIBIDO [None]
  - ERECTILE DYSFUNCTION [None]
  - PARTNER STRESS [None]
  - SEXUAL DYSFUNCTION [None]
